FAERS Safety Report 9675586 (Version 1)
Quarter: 2013Q4

REPORT INFORMATION
  Report Type: Spontaneous
  Country: US (occurrence: US)
  Receive Date: 20131107
  Receipt Date: 20131107
  Transmission Date: 20140711
  Serious: Yes (Other)
  Sender: FDA-Public Use
  Company Number: US-PFIZER INC-2013315708

PATIENT
  Sex: Female

DRUGS (2)
  1. CALAN SR [Suspect]
     Indication: ATRIAL FIBRILLATION
     Dosage: 90 MG (BY BREAKING THE 180MG TABLET IN HALF), 2X/DAY
     Route: 048
  2. CALAN SR [Suspect]
     Indication: MIGRAINE

REACTIONS (3)
  - Cardiac valve disease [Unknown]
  - Off label use [Unknown]
  - Therapeutic response unexpected [Unknown]
